FAERS Safety Report 14021815 (Version 2)
Quarter: 2017Q4

REPORT INFORMATION
  Report Type: Report from Study
  Country: US (occurrence: US)
  Receive Date: 20170928
  Receipt Date: 20171218
  Transmission Date: 20180321
  Serious: Yes (Other)
  Sender: FDA-Public Use
  Company Number: US-CLOVIS ONCOLOGY-CLO-2017-000905

PATIENT
  Age: 58 Year
  Sex: Female

DRUGS (2)
  1. RUBRACA [Suspect]
     Active Substance: RUCAPARIB CAMSYLATE
     Indication: OVARIAN CANCER
     Dosage: 600 MG, BID
     Route: 048
     Dates: start: 20170815, end: 20171114
  2. RUBRACA [Suspect]
     Active Substance: RUCAPARIB CAMSYLATE
     Dosage: 300 MG, BID
     Route: 048
     Dates: start: 20171115, end: 20171121

REACTIONS (20)
  - Abdominal distension [Recovering/Resolving]
  - Red blood cell count decreased [Unknown]
  - Blood count abnormal [Unknown]
  - Nausea [Not Recovered/Not Resolved]
  - Bladder discomfort [Unknown]
  - Sensitivity of teeth [Unknown]
  - Abdominal pain lower [Unknown]
  - Platelet count decreased [Unknown]
  - Abdominal neoplasm [Unknown]
  - Flatulence [Unknown]
  - Malignant neoplasm progression [Unknown]
  - Insomnia [Recovering/Resolving]
  - Tumour marker increased [Unknown]
  - Neuropathy peripheral [Unknown]
  - Dyspepsia [Unknown]
  - White blood cell count decreased [Not Recovered/Not Resolved]
  - Hypertonic bladder [Unknown]
  - Abdominal discomfort [Unknown]
  - Fatigue [Unknown]
  - Prescribed underdose [Unknown]

NARRATIVE: CASE EVENT DATE: 2017
